FAERS Safety Report 9749191 (Version 1)
Quarter: 2013Q4

REPORT INFORMATION
  Report Type: Spontaneous
  Country: US (occurrence: US)
  Receive Date: 20131212
  Receipt Date: 20131212
  Transmission Date: 20140711
  Serious: No
  Sender: FDA-Public Use
  Company Number: US-INCYTE CORPORATION-2013IN002352

PATIENT
  Age: 68 Year
  Sex: Female

DRUGS (9)
  1. JAKAFI [Suspect]
     Dosage: 20 MG, BID
     Route: 048
  2. JAKAFI [Suspect]
     Dosage: 15 MG, BID
     Route: 048
     Dates: start: 20130807
  3. HYDREA [Concomitant]
  4. OMEPRAZOLE [Concomitant]
  5. SPIRONOLACTONE [Concomitant]
  6. ASPIRIN [Concomitant]
  7. PAROXETINE [Concomitant]
  8. LORATADINE [Concomitant]
  9. TUMS [Concomitant]

REACTIONS (1)
  - Abdominal distension [Not Recovered/Not Resolved]
